FAERS Safety Report 7772332-0 (Version None)
Quarter: 2011Q3

REPORT INFORMATION
  Report Type: 
  Country: None (occurrence: None)
  Receive Date: 20110922
  Receipt Date: 20100809
  Transmission Date: 20111222
  Serious: Yes (Other)
  Sender: FDA-Public Use
  Company Number: US-ASTRAZENECA-2008UW04318

PATIENT
  Age: 794 Month
  Sex: Male
  Weight: 85.7 kg

DRUGS (13)
  1. SEROQUEL [Suspect]
     Dosage: 100-600MG
     Route: 048
     Dates: start: 20030314
  2. SEROQUEL [Suspect]
     Indication: BIPOLAR DISORDER
     Route: 048
     Dates: start: 20030301
  3. SEROQUEL [Suspect]
     Indication: DEPRESSION
     Route: 048
     Dates: start: 20030301
  4. SEROQUEL [Suspect]
     Route: 048
     Dates: start: 20040913, end: 20080206
  5. NAPROXEN [Concomitant]
     Dates: start: 19970611
  6. VENLAFEXIN HCL [Concomitant]
     Dosage: 75-225 MG
     Route: 048
     Dates: start: 20030314
  7. VARDENAFIL HCL [Concomitant]
     Dosage: 20MG, HALF TABLET 30 TO 60 MINUTES PRIOR TO INTERCOURSE
     Dates: start: 20061205
  8. SEROQUEL [Suspect]
     Dosage: 100-600MG
     Route: 048
     Dates: start: 20030314
  9. SEROQUEL [Suspect]
     Route: 048
     Dates: start: 20040913, end: 20080206
  10. CLONAZEPAM [Concomitant]
     Dosage: 1 MCG HALF TABLET EVERY MORNING AND 1 TABLET AT BED TIME
     Dates: start: 20030219
  11. PROPOXYPHENE HYDROCHLORIDE [Concomitant]
     Dates: start: 20031211
  12. SIMVASTATIN [Concomitant]
     Dosage: 10-20MG
     Dates: start: 20040913
  13. HYDROCODONE [Concomitant]
     Dosage: 5/500MG, 1 TABLET THREE TIMES DAILY AS NEEDED
     Dates: start: 20041122

REACTIONS (9)
  - HYPERLIPIDAEMIA [None]
  - ROAD TRAFFIC ACCIDENT [None]
  - DIABETIC COMPLICATION [None]
  - HYPERGLYCAEMIA [None]
  - BLOOD CHOLESTEROL INCREASED [None]
  - OBESITY [None]
  - MENTAL DISORDER [None]
  - ERECTILE DYSFUNCTION [None]
  - DIABETES MELLITUS [None]
